FAERS Safety Report 5335966-9 (Version None)
Quarter: 2007Q2

REPORT INFORMATION
  Report Type: 
  Country: None (occurrence: None)
  Receive Date: 20070305
  Receipt Date: 20070205
  Transmission Date: 20071010
  Serious: Yes (Life-Threatening)
  Sender: FDA-Public Use
  Company Number: DMR-2006-00060

PATIENT
  Age: 37 Year
  Sex: Female
  Weight: 64.4108 kg

DRUGS (11)
  1. EVOXAC [Suspect]
     Indication: DRY MOUTH
     Dosage: 2 DOSES (30 MG), PER ORAL
     Route: 048
     Dates: start: 20060918, end: 20060919
  2. CELEXA (CITALOPRAM HYDROBROMIDE) (UNKNOWN)(CITALOPRAM HYDROBROMIDE) [Concomitant]
  3. CLARINEX (DESLORATADINE) (UNKNOWN) (DESLORATADINE) [Concomitant]
  4. XANAX (ALPRAZOLAM) (UNKNOWN) (ALPRAZOLAM) [Concomitant]
  5. LORTAB (PARACETAMOL, HYDROCODONE BITARTRATE) (UNKNOWN) (PARACETAMOL, H [Concomitant]
  6. NEXIUM (ESOMEPRAZOLE MAGNESIUM)(UNKNOWN) (ESOMEPRAZOLE MAGNESIUM) [Concomitant]
  7. SINGULAIR (MONTELUKAST) (UNKNOWN) (MONTELUKAST) [Concomitant]
  8. TOPAMAX (TOPIRAMATE) (UNKNOWN) (TOPIRAMATE) [Concomitant]
  9. BACLOFEN (BLACLOFEN) (UNKNOWN) (BACLOFEN) [Concomitant]
  10. PHENERGAN (PROMETHAZINE HYDROCHLORIDE) (UNKNOWN) (PROMETHAZINE HYDROCH [Concomitant]
  11. AMBIEN (ZOLPIDEM TARTRATE) (UNKNOWN) (ZOLPIDEM TARTRATE) [Concomitant]

REACTIONS (3)
  - DYSPNOEA [None]
  - TACHYCARDIA [None]
  - WHEEZING [None]
